FAERS Safety Report 6515661-0 (Version None)
Quarter: 2009Q4

REPORT INFORMATION
  Report Type: 
  Country: None (occurrence: None)
  Receive Date: 20091223
  Receipt Date: 20091215
  Transmission Date: 20100525
  Serious: Yes (Other)
  Sender: FDA-Public Use
  Company Number: US-RB-027161-09

PATIENT
  Age: 64 Year
  Sex: Female

DRUGS (1)
  1. MUCINEX MINIMELTS BUBBLEGUM [Suspect]
     Route: 048

REACTIONS (3)
  - ABDOMINAL PAIN UPPER [None]
  - GASTROINTESTINAL HAEMORRHAGE [None]
  - GASTROINTESTINAL MUCOSAL DISORDER [None]
